FAERS Safety Report 9799603 (Version 2)
Quarter: 2014Q1

REPORT INFORMATION
  Report Type: Spontaneous
  Country: US (occurrence: US)
  Receive Date: 20140106
  Receipt Date: 20140106
  Transmission Date: 20141002
  Serious: Yes (Hospitalization)
  Sender: FDA-Public Use
  Company Number: US-GILEAD-2010-0031388

PATIENT
  Sex: Female

DRUGS (7)
  1. LETAIRIS [Suspect]
     Indication: PULMONARY HYPERTENSION
     Route: 048
     Dates: start: 20100222, end: 20100902
  2. LETAIRIS [Suspect]
     Route: 048
     Dates: start: 20100118
  3. REVATIO [Concomitant]
  4. SYNTHROID [Concomitant]
  5. COUMADIN [Concomitant]
  6. PEPCID [Concomitant]
  7. IRON SULFATE [Concomitant]

REACTIONS (1)
  - Haemoglobin decreased [Recovered/Resolved]
